FAERS Safety Report 14108814 (Version 1)
Quarter: 2017Q4

REPORT INFORMATION
  Report Type: Not Available
  Country: US (occurrence: US)
  Receive Date: 20171019
  Receipt Date: 20171019
  Transmission Date: 20180321
  Serious: No
  Sender: FDA-Public Use
  Company Number: US-NEUROCRINE BIOSCIENCES INC.-2017NBI00615

PATIENT
  Age: 78 Year
  Sex: Female
  Weight: 67.19 kg

DRUGS (16)
  1. METFORMIN [Concomitant]
     Active Substance: METFORMIN HYDROCHLORIDE
  2. INGREZZA [Suspect]
     Active Substance: VALBENAZINE
     Indication: TARDIVE DYSKINESIA
     Route: 048
     Dates: start: 20170718, end: 20170724
  3. LATANOPRAST [Concomitant]
  4. LEVOTHYROXINE. [Concomitant]
     Active Substance: LEVOTHYROXINE
  5. VITAMIN D2 [Concomitant]
     Active Substance: ERGOCALCIFEROL
  6. CALCIUM [Concomitant]
     Active Substance: CALCIUM
  7. INGREZZA [Suspect]
     Active Substance: VALBENAZINE
     Route: 048
     Dates: start: 20170725, end: 20170731
  8. FISH OIL [Concomitant]
     Active Substance: FISH OIL
  9. KLONOPIN [Concomitant]
     Active Substance: CLONAZEPAM
  10. BIOTIN [Concomitant]
     Active Substance: BIOTIN
  11. FLUVOXATINE [Concomitant]
  12. DILTIAZEM. [Concomitant]
     Active Substance: DILTIAZEM
  13. ENALAPRIL [Concomitant]
     Active Substance: ENALAPRIL
  14. ATORVASTATIN [Concomitant]
     Active Substance: ATORVASTATIN
  15. CENTRUM [Concomitant]
     Active Substance: VITAMINS
  16. CLARITIN [Concomitant]
     Active Substance: LORATADINE

REACTIONS (1)
  - Tardive dyskinesia [Not Recovered/Not Resolved]

NARRATIVE: CASE EVENT DATE: 20170719
